FAERS Safety Report 6929137-X (Version None)
Quarter: 2010Q3

REPORT INFORMATION
  Report Type: 
  Country: None (occurrence: None)
  Receive Date: 20100812
  Receipt Date: 20100803
  Transmission Date: 20110219
  Serious: Yes (Hospitalization)
  Sender: FDA-Public Use
  Company Number: 016620

PATIENT
  Sex: Male

DRUGS (1)
  1. LACOSAMIDE [Suspect]
     Dosage: (200 MG, INCORPORATION OF MEDICAMENT IS NOT ASSURED; TOTAL AMOUNT 200MG 1 TABLET ORAL)
     Route: 048
     Dates: start: 20080803

REACTIONS (1)
  - ACCIDENTAL DRUG INTAKE BY CHILD [None]
